FAERS Safety Report 20485485 (Version 1)
Quarter: 2022Q1

REPORT INFORMATION
  Report Type: Spontaneous
  Country: RO (occurrence: None)
  Receive Date: 20220217
  Receipt Date: 20220217
  Transmission Date: 20220423
  Serious: Yes (Hospitalization)
  Sender: FDA-Public Use
  Company Number: 2022A069574

PATIENT
  Age: 749 Month
  Sex: Male
  Weight: 67 kg

DRUGS (3)
  1. FASENRA [Suspect]
     Active Substance: BENRALIZUMAB
     Indication: Asthma
     Route: 058
     Dates: start: 20210325
  2. OXYGEN [Concomitant]
     Active Substance: OXYGEN
  3. INHALED CORTICOSTEROID THERAPY PLUS BETA-2 ADRENERGIC [Concomitant]
     Dosage: FOSTER 2-0-2/DAY

REACTIONS (2)
  - Asthma [Unknown]
  - Panic attack [Unknown]

NARRATIVE: CASE EVENT DATE: 20211201
